FAERS Safety Report 11631377 (Version 4)
Quarter: 2016Q4

REPORT INFORMATION
  Report Type: Report from Study
  Country: FR (occurrence: FR)
  Receive Date: 20151014
  Receipt Date: 20161025
  Transmission Date: 20170206
  Serious: No
  Sender: FDA-Public Use
  Company Number: FR-ROCHE-1645475

PATIENT
  Age: 67 Year
  Sex: Female

DRUGS (6)
  1. RANIBIZUMAB [Suspect]
     Active Substance: RANIBIZUMAB
     Dosage: LEFT EYE
     Route: 050
     Dates: start: 20150630
  2. RANIBIZUMAB [Suspect]
     Active Substance: RANIBIZUMAB
     Dosage: LEFT EYE
     Route: 050
     Dates: start: 20150728
  3. RANIBIZUMAB [Suspect]
     Active Substance: RANIBIZUMAB
     Indication: AGE-RELATED MACULAR DEGENERATION
     Dosage: LEFT EYE
     Route: 050
     Dates: start: 20150605
  4. RANIBIZUMAB [Suspect]
     Active Substance: RANIBIZUMAB
     Dosage: LEFT EYE
     Route: 050
     Dates: start: 20151123
  5. RANIBIZUMAB [Suspect]
     Active Substance: RANIBIZUMAB
     Dosage: LEFT EYE
     Route: 050
     Dates: start: 20151222, end: 20160120
  6. RANIBIZUMAB [Suspect]
     Active Substance: RANIBIZUMAB
     Dosage: (LEFT EYE)
     Route: 050
     Dates: start: 20150923

REACTIONS (1)
  - Inappropriate schedule of drug administration [Unknown]

NARRATIVE: CASE EVENT DATE: 20150630
